FAERS Safety Report 7815429-9 (Version None)
Quarter: 2011Q4

REPORT INFORMATION
  Report Type: 
  Country: None (occurrence: None)
  Receive Date: 20111014
  Receipt Date: 20111010
  Transmission Date: 20120403
  Serious: Yes (Hospitalization, Other)
  Sender: FDA-Public Use
  Company Number: PHEH2011US04901

PATIENT
  Sex: Female

DRUGS (1)
  1. EXJADE [Suspect]
     Indication: MYELODYSPLASTIC SYNDROME
     Dosage: 1250 MG, QD
     Route: 048

REACTIONS (7)
  - DYSPNOEA [None]
  - GENERAL PHYSICAL HEALTH DETERIORATION [None]
  - ASTHENIA [None]
  - MALAISE [None]
  - GAIT DISTURBANCE [None]
  - EAR DISCOMFORT [None]
  - DECREASED APPETITE [None]
